FAERS Safety Report 22960414 (Version 2)
Quarter: 2023Q4

REPORT INFORMATION
  Report Type: Spontaneous
  Country: DE (occurrence: DE)
  Receive Date: 20230920
  Receipt Date: 20231006
  Transmission Date: 20240110
  Serious: No
  Sender: FDA-Public Use
  Company Number: DE-UCBSA-2023044837

PATIENT
  Age: 54 Year
  Sex: Male

DRUGS (2)
  1. NEUPRO [Suspect]
     Active Substance: ROTIGOTINE
     Indication: Parkinson^s disease
     Dosage: UNK
     Route: 062
  2. NEUPRO [Suspect]
     Active Substance: ROTIGOTINE
     Dosage: 9 MILLIGRAM, ONCE DAILY (QD) (6MG PATCH AND 3MG PATCH)
     Route: 062
     Dates: start: 2023

REACTIONS (5)
  - Hyperhidrosis [Unknown]
  - Skin irritation [Unknown]
  - Product adhesion issue [Unknown]
  - Drug ineffective [Unknown]
  - Incorrect dose administered [Unknown]
